FAERS Safety Report 9281782 (Version 2)
Quarter: 2013Q4

REPORT INFORMATION
  Report Type: Spontaneous
  Country: US (occurrence: US)
  Receive Date: 20130510
  Receipt Date: 20131011
  Transmission Date: 20140711
  Serious: Yes (Hospitalization)
  Sender: FDA-Public Use
  Company Number: US-B.I. PHARMACEUTICALS,INC./RIDGEFIELD-2013-BI-13022BP

PATIENT
  Age: 76 Year
  Sex: Male
  Weight: 132.9 kg

DRUGS (22)
  1. PRADAXA [Suspect]
     Indication: ANTICOAGULANT THERAPY
     Dosage: 300 MG
     Route: 048
     Dates: start: 20120130, end: 20120616
  2. A+D OINTMENT [Concomitant]
     Indication: SKIN DISORDER
     Route: 061
  3. ALCOHOL PREP PAD [Concomitant]
     Indication: SKIN DISORDER
     Route: 061
  4. BUMETANIDE [Concomitant]
     Indication: FLUID RETENTION
     Route: 061
  5. BUMETANIDE [Concomitant]
     Indication: SWELLING
  6. BUMETANIDE [Concomitant]
     Indication: CARDIAC DISORDER
  7. BUMETANIDE [Concomitant]
     Indication: BLOOD PRESSURE ABNORMAL
  8. CYANOCOBALAMIN [Concomitant]
     Indication: ANAEMIA
     Route: 030
  9. DILTIAZEM [Concomitant]
     Indication: BLOOD PRESSURE
     Dosage: 120 MG
     Route: 048
  10. FERROUS SULFATE [Concomitant]
     Indication: ANAEMIA
     Dosage: 975 MG
     Route: 048
  11. FOLIC ACID [Concomitant]
     Indication: SUPPLEMENTATION THERAPY
     Dosage: 1 MG
     Route: 048
  12. FORMOTEROL FUMARATE [Concomitant]
     Indication: DYSPNOEA
     Dosage: 24 MCG
     Route: 055
  13. INSULIN GLARGINE [Concomitant]
     Indication: DIABETES MELLITUS
     Dosage: 10 U
     Route: 055
  14. INSULIN ASPART [Concomitant]
     Indication: DIABETES MELLITUS
     Dosage: 11 U
     Route: 055
  15. LISINOPRIL [Concomitant]
     Indication: BLOOD PRESSURE ABNORMAL
     Dosage: 5 MG
  16. POTASSIUM CHL [Concomitant]
     Indication: MINERAL SUPPLEMENTATION
     Dosage: 20 MEQ
     Route: 048
  17. PREGABALIN [Concomitant]
     Indication: PAIN
     Dosage: 225 MG
     Route: 048
  18. RANITIDINE [Concomitant]
     Indication: GASTRIC DISORDER
     Dosage: 300 MG
     Route: 048
  19. ROSUVASTATIN [Concomitant]
     Indication: BLOOD CHOLESTEROL ABNORMAL
     Dosage: 10 MG
     Route: 048
  20. SAF-GEL HYDRATING GEL [Concomitant]
     Indication: WOUND TREATMENT
     Route: 061
  21. TAMSULOSIN HCL [Concomitant]
     Indication: PROSTATIC DISORDER
     Dosage: 0.4 MG
     Route: 048
  22. UREA 10% LOTION [Concomitant]
     Indication: DRY SKIN
     Route: 061

REACTIONS (2)
  - Gastrointestinal haemorrhage [Unknown]
  - Anaemia [Unknown]
